FAERS Safety Report 9171008 (Version 2)
Quarter: 2013Q2

REPORT INFORMATION
  Report Type: Spontaneous
  Country: US (occurrence: US)
  Receive Date: 20130319
  Receipt Date: 20130416
  Transmission Date: 20140414
  Serious: Yes (Death)
  Sender: FDA-Public Use
  Company Number: US-TEVA-392426USA

PATIENT
  Sex: Male

DRUGS (1)
  1. ACTIQ [Suspect]
     Route: 048

REACTIONS (1)
  - Colon cancer metastatic [Fatal]
